FAERS Safety Report 21532288 (Version 1)
Quarter: 2022Q4

REPORT INFORMATION
  Report Type: Report from Study
  Country: US (occurrence: US)
  Receive Date: 20221101
  Receipt Date: 20221101
  Transmission Date: 20230113
  Serious: Yes (Other)
  Sender: FDA-Public Use
  Company Number: US-BRISTOL-MYERS SQUIBB COMPANY-2022-126451

PATIENT
  Age: 59 Year
  Sex: Male
  Weight: 122.80 kg

DRUGS (4)
  1. LENALIDOMIDE [Suspect]
     Active Substance: LENALIDOMIDE
     Indication: Plasma cell myeloma
     Dosage: DAY 1-14 OF 21-DAY CYCLE (5 CYCLES)
     Route: 048
     Dates: start: 20150601
  2. LENALIDOMIDE [Suspect]
     Active Substance: LENALIDOMIDE
     Dosage: DAILY AS MAINTENANCE DOSE
     Route: 048
     Dates: start: 20160125, end: 20190122
  3. DEXAMETHASONE [Suspect]
     Active Substance: DEXAMETHASONE
     Indication: Plasma cell myeloma
     Dosage: 5 CYCLES
     Route: 065
     Dates: start: 20150601
  4. BORTEZOMIB [Suspect]
     Active Substance: BORTEZOMIB
     Indication: Plasma cell myeloma
     Dosage: 5 CYCLES
     Route: 065
     Dates: start: 20150601

REACTIONS (1)
  - Prostate cancer [Unknown]

NARRATIVE: CASE EVENT DATE: 20180323
